FAERS Safety Report 15901569 (Version 1)
Quarter: 2019Q1

REPORT INFORMATION
  Report Type: Spontaneous
  Country: DE (occurrence: DE)
  Receive Date: 20190201
  Receipt Date: 20190201
  Transmission Date: 20190417
  Serious: Yes (Other)
  Sender: FDA-Public Use
  Company Number: DE-TEVA-2019-DE-1006748

PATIENT
  Age: 3 Year
  Sex: Male
  Weight: 16 kg

DRUGS (1)
  1. AMOXI 250 TS [Suspect]
     Active Substance: AMOXICILLIN
     Dosage: 3 X 5ML
     Route: 048
     Dates: start: 20190114, end: 20190114

REACTIONS (7)
  - Hypotonia [Unknown]
  - Confusional state [Recovering/Resolving]
  - Somnolence [Unknown]
  - Pallor [Recovering/Resolving]
  - Vomiting [Recovering/Resolving]
  - Insomnia [Recovering/Resolving]
  - Dizziness [Recovering/Resolving]

NARRATIVE: CASE EVENT DATE: 201901
